FAERS Safety Report 10847149 (Version 1)
Quarter: 2015Q1

REPORT INFORMATION
  Report Type: Spontaneous
  Country: US (occurrence: US)
  Receive Date: 20150220
  Receipt Date: 20150220
  Transmission Date: 20150721
  Serious: No
  Sender: FDA-Public Use
  Company Number: US-ABBVIE-14P-163-1188941-00

PATIENT
  Age: 41 Year
  Sex: Male

DRUGS (1)
  1. LUPRON DEPOT [Suspect]
     Active Substance: LEUPROLIDE ACETATE
     Indication: OCCUPATIONAL EXPOSURE TO PRODUCT
     Route: 050
     Dates: start: 20140106, end: 20140106

REACTIONS (3)
  - Occupational exposure to product [Recovered/Resolved]
  - Injury associated with device [Recovered/Resolved]
  - Device malfunction [Unknown]

NARRATIVE: CASE EVENT DATE: 20140106
